FAERS Safety Report 8046398-7 (Version None)
Quarter: 2012Q1

REPORT INFORMATION
  Report Type: 
  Country: None (occurrence: None)
  Receive Date: 20120113
  Receipt Date: 20120109
  Transmission Date: 20120608
  Serious: Yes (Death, Life-Threatening, Disabling)
  Sender: FDA-Public Use
  Company Number: US-GILEAD-2011-0048592

PATIENT
  Sex: Female

DRUGS (4)
  1. OXYGEN [Concomitant]
  2. LETAIRIS [Suspect]
     Indication: OBESITY
  3. LETAIRIS [Suspect]
     Indication: PULMONARY HYPERTENSION
     Dosage: 10 MG, UNK
     Route: 048
     Dates: start: 20071121
  4. LETAIRIS [Suspect]
     Indication: HYPOVENTILATION

REACTIONS (1)
  - DEATH [None]
